FAERS Safety Report 23104592 (Version 1)
Quarter: 2023Q4

REPORT INFORMATION
  Report Type: Report from Study
  Country: IT (occurrence: IT)
  Receive Date: 20231025
  Receipt Date: 20231025
  Transmission Date: 20240110
  Serious: Yes (Hospitalization)
  Sender: FDA-Public Use
  Company Number: IT-BAXTER-2023BAX034012

PATIENT
  Age: 68 Year
  Sex: Female
  Weight: 59 kg

DRUGS (5)
  1. DOXORUBICIN [Suspect]
     Active Substance: DOXORUBICIN
     Indication: Ovarian cancer
     Dosage: 30 MG/M2 (TOTAL DOSE ADMINISTERED UNKNOWN), Q3W, DOSAGE FORM:  CONCENTRATE FOR SOLUTION FOR INFUSION
     Route: 042
     Dates: start: 20230914, end: 20230914
  2. YONDELIS [Suspect]
     Active Substance: TRABECTEDIN
     Indication: Ovarian cancer
     Dosage: 1.1 MG/M2 (TOTAL DOSE ADMINISTERED UNKNOWN), Q3W
     Route: 042
     Dates: start: 20230914, end: 20230914
  3. CARDIOASPIRINA [Concomitant]
     Active Substance: ASPIRIN
     Indication: Coronary artery thrombosis
     Dosage: UNK
     Route: 065
  4. LANSOPRAZOLE [Concomitant]
     Active Substance: LANSOPRAZOLE
     Indication: Oesophagitis
     Dosage: UNK
     Route: 065
  5. CHOLECALCIFEROL [Concomitant]
     Active Substance: CHOLECALCIFEROL
     Indication: Vitamin D deficiency
     Route: 065

REACTIONS (2)
  - Abdominal distension [Unknown]
  - Confusional state [Unknown]

NARRATIVE: CASE EVENT DATE: 20230920
